FAERS Safety Report 20978518 (Version 1)
Quarter: 2022Q2

REPORT INFORMATION
  Report Type: Spontaneous
  Country: US (occurrence: US)
  Receive Date: 20220618
  Receipt Date: 20220618
  Transmission Date: 20220721
  Serious: No
  Sender: FDA-Public Use
  Company Number: US-SANOFI-01128344

PATIENT
  Age: 20 Year
  Sex: Female

DRUGS (1)
  1. DUPIXENT [Suspect]
     Active Substance: DUPILUMAB
     Indication: Eczema
     Dosage: 300 MG, QOW
     Dates: start: 2022

REACTIONS (5)
  - Injection site pain [Recovering/Resolving]
  - Injection site inflammation [Recovered/Resolved]
  - Injection site erythema [Recovering/Resolving]
  - Nervousness [Recovering/Resolving]
  - Product temperature excursion issue [Unknown]

NARRATIVE: CASE EVENT DATE: 20220501
